FAERS Safety Report 7723776-4 (Version None)
Quarter: 2011Q3

REPORT INFORMATION
  Report Type: 
  Country: None (occurrence: None)
  Receive Date: 20110901
  Receipt Date: 20110819
  Transmission Date: 20111222
  Serious: Yes (Other)
  Sender: FDA-Public Use
  Company Number: PHHY2011US52036

PATIENT
  Sex: Male
  Weight: 89.796 kg

DRUGS (3)
  1. ALBUTEROL SULFATE AUTOHALER [Concomitant]
     Dosage: UNK UKN, UNK
  2. FLONASE [Concomitant]
     Dosage: UNK UKN, UNK
  3. DIOVAN [Suspect]
     Indication: HYPERTENSION
     Dosage: 1 DF, QD
     Route: 048

REACTIONS (2)
  - CONVULSION [None]
  - COUGH [None]
